FAERS Safety Report 7952147-0 (Version None)
Quarter: 2011Q4

REPORT INFORMATION
  Report Type: 
  Country: None (occurrence: None)
  Receive Date: 20111201
  Receipt Date: 20111128
  Transmission Date: 20120403
  Serious: Yes (Life-Threatening)
  Sender: FDA-Public Use
  Company Number: PHHY2011JP104336

PATIENT
  Age: 50 Year
  Sex: Female

DRUGS (1)
  1. LAMISIL [Suspect]
     Indication: ONYCHOMYCOSIS
     Dosage: 125 MG, QD
     Route: 048

REACTIONS (2)
  - HEPATITIS [None]
  - ALANINE AMINOTRANSFERASE INCREASED [None]
